FAERS Safety Report 9016382 (Version 3)
Quarter: 2014Q1

REPORT INFORMATION
  Report Type: Report from Study
  Country: US (occurrence: US)
  Receive Date: 20130116
  Receipt Date: 20140124
  Transmission Date: 20141002
  Serious: Yes (Hospitalization, Other)
  Sender: FDA-Public Use
  Company Number: US-ALEXION PHARMACEUTICALS INC.-A201300007

PATIENT
  Age: 87 Year
  Sex: Male

DRUGS (1)
  1. SOLIRIS [Suspect]
     Indication: HAEMOLYTIC URAEMIC SYNDROME
     Route: 042

REACTIONS (12)
  - Rectal haemorrhage [Unknown]
  - Gastrointestinal haemorrhage [Unknown]
  - Pseudomonas infection [Not Recovered/Not Resolved]
  - Pneumonia [Not Recovered/Not Resolved]
  - Dyspnoea [Not Recovered/Not Resolved]
  - Arteriovenous fistula operation [Recovered/Resolved]
  - Haemoptysis [Not Recovered/Not Resolved]
  - Mallory-Weiss syndrome [Unknown]
  - Staphylococcal infection [Not Recovered/Not Resolved]
  - Pleural effusion [Not Recovered/Not Resolved]
  - Anaemia [Unknown]
  - Platelet count decreased [Unknown]
